FAERS Safety Report 23245939 (Version 1)
Quarter: 2023Q4

REPORT INFORMATION
  Report Type: Spontaneous
  Country: US (occurrence: None)
  Receive Date: 20231129
  Receipt Date: 20231129
  Transmission Date: 20240110
  Serious: Yes (Life-Threatening, Hospitalization, Disabling)
  Sender: FDA-Public Use
  Company Number: None

PATIENT
  Age: 30 Year
  Sex: Male
  Weight: 81 kg

DRUGS (4)
  1. VRAYLAR [Suspect]
     Active Substance: CARIPRAZINE
     Indication: Schizoaffective disorder bipolar type
     Dosage: OTHER QUANTITY : 1 TABLET(S);?FREQUENCY : DAILY;?
     Route: 048
     Dates: start: 20220512, end: 20230524
  2. LITHIUM [Concomitant]
     Active Substance: LITHIUM
  3. ABILIFY [Concomitant]
     Active Substance: ARIPIPRAZOLE
  4. SEROQUEL [Concomitant]
     Active Substance: QUETIAPINE FUMARATE

REACTIONS (11)
  - Oppositional defiant disorder [None]
  - Delusion [None]
  - Feeling of despair [None]
  - Intentional self-injury [None]
  - Superficial injury of eye [None]
  - Brain injury [None]
  - Motor dysfunction [None]
  - Cognitive disorder [None]
  - Memory impairment [None]
  - Thinking abnormal [None]
  - Suicide attempt [None]

NARRATIVE: CASE EVENT DATE: 20220524
